FAERS Safety Report 15104155 (Version 4)
Quarter: 2018Q3

REPORT INFORMATION
  Report Type: Spontaneous
  Country: IN (occurrence: IN)
  Receive Date: 20180703
  Receipt Date: 20180718
  Transmission Date: 20181010
  Serious: Yes (Hospitalization)
  Sender: FDA-Public Use
  Company Number: IN-PFIZER INC-2018162191

PATIENT
  Age: 66 Year
  Sex: Female

DRUGS (1)
  1. PALBACE [Suspect]
     Active Substance: PALBOCICLIB
     Indication: BREAST CANCER METASTATIC
     Dosage: 125 MG, 1X/DAY
     Route: 048
     Dates: start: 20170904

REACTIONS (8)
  - Dyspnoea [Unknown]
  - Pain [Not Recovered/Not Resolved]
  - Asthma [Unknown]
  - Asthenia [Unknown]
  - Diarrhoea [Unknown]
  - Chills [Not Recovered/Not Resolved]
  - Neoplasm progression [Unknown]
  - Fatigue [Unknown]
